FAERS Safety Report 19946622 (Version 2)
Quarter: 2021Q4

REPORT INFORMATION
  Report Type: Spontaneous
  Country: CZ (occurrence: CZ)
  Receive Date: 20211012
  Receipt Date: 20211103
  Transmission Date: 20220303
  Serious: Yes (Other)
  Sender: FDA-Public Use
  Company Number: CZ-BAYER-2021A223225

PATIENT
  Age: 28 Year
  Sex: Male
  Weight: 85 kg

DRUGS (5)
  1. JIVI [Suspect]
     Active Substance: DAMOCTOCOG ALFA PEGOL
     Indication: Factor VIII deficiency
     Dosage: 2000 IU, BIW AS REGUKAR PROPHYLAXIS
     Dates: start: 20200610
  2. JIVI [Suspect]
     Active Substance: DAMOCTOCOG ALFA PEGOL
     Indication: Factor VIII deficiency
     Dosage: 2000 IU, ONCE, DUE TO KNEE JOINT BLEED
     Dates: start: 20201012, end: 20201012
  3. JIVI [Suspect]
     Active Substance: DAMOCTOCOG ALFA PEGOL
     Indication: Factor VIII deficiency
     Dosage: 2000IU, 3 TIMES DUE TO KNEE JOINT BLEED
     Dates: start: 20201017, end: 20201017
  4. JIVI [Suspect]
     Active Substance: DAMOCTOCOG ALFA PEGOL
     Indication: Factor VIII deficiency
     Dosage: 2000IU, ONCE, DUE TO KNEE JOINT BLEED
     Dates: start: 20201101, end: 20201101
  5. JIVI [Suspect]
     Active Substance: DAMOCTOCOG ALFA PEGOL
     Indication: Factor VIII deficiency
     Dosage: 12 TIMES DUE TO RIGHT ANKLE BLEED, REPEATDLY, 2000IU DOSES
     Dates: start: 20210820

REACTIONS (2)
  - Haemarthrosis [None]
  - Haemarthrosis [None]
